FAERS Safety Report 4596310-8 (Version None)
Quarter: 2005Q1

REPORT INFORMATION
  Report Type: 
  Country: None (occurrence: None)
  Receive Date: 20050302
  Receipt Date: 20040521
  Transmission Date: 20050727
  Serious: Yes (Death, Hospitalization, Disabling, Other)
  Sender: FDA-Public Use
  Company Number: JP-BRISTOL-MYERS SQUIBB COMPANY-12599510

PATIENT
  Age: 53 Year
  Sex: Male

DRUGS (12)
  1. EFAVIRENZ CAPS 600 MG [Suspect]
     Indication: HIV INFECTION
     Route: 048
     Dates: start: 20040419, end: 20040517
  2. ISONIAZID [Suspect]
     Indication: DISSEMINATED TUBERCULOSIS
     Route: 048
     Dates: start: 20040430, end: 20040517
  3. SULFAMETHOXAZOLE + TRIMETHOPRIM [Suspect]
     Indication: PROPHYLAXIS
     Dosage: ^480 MG^
     Route: 048
     Dates: start: 20040218, end: 20040517
  4. TENOFOVIR DISOPROXIL FUMARATE [Suspect]
     Indication: HIV INFECTION
     Route: 048
     Dates: start: 20040419, end: 20040517
  5. LAMIVUDINE [Suspect]
     Indication: HIV INFECTION
     Route: 048
     Dates: start: 20040419, end: 20040517
  6. GLYBURIDE [Suspect]
     Indication: DIABETES MELLITUS
     Route: 048
     Dates: start: 20040224, end: 20040517
  7. RIFAMPIN [Suspect]
     Indication: DISSEMINATED TUBERCULOSIS
     Route: 048
     Dates: start: 20040430, end: 20040517
  8. ETHAMBUTOL HCL [Suspect]
     Indication: DISSEMINATED TUBERCULOSIS
     Route: 048
     Dates: start: 20040319, end: 20040517
  9. PYRAZINAMIDE [Suspect]
     Indication: DISSEMINATED TUBERCULOSIS
     Route: 048
     Dates: start: 20040430, end: 20040517
  10. LOXOPROFEN SODIUM [Suspect]
     Indication: SCIATICA
     Route: 048
     Dates: start: 20040414, end: 20040517
  11. ALLOPURINOL [Suspect]
     Indication: HYPERURICAEMIA
     Route: 048
     Dates: start: 20040511, end: 20040517
  12. AMOXICILLIN [Suspect]
     Dosage: DOSAGE FORM = 1 CAPSULE
     Route: 048
     Dates: start: 20040414, end: 20040517

REACTIONS (5)
  - DISSEMINATED TUBERCULOSIS [None]
  - DRUG ERUPTION [None]
  - METABOLIC ACIDOSIS [None]
  - MULTI-ORGAN FAILURE [None]
  - RENAL FAILURE ACUTE [None]
